FAERS Safety Report 24783177 (Version 1)
Quarter: 2024Q4

REPORT INFORMATION
  Report Type: Spontaneous
  Country: US (occurrence: US)
  Receive Date: 20241227
  Receipt Date: 20241227
  Transmission Date: 20250114
  Serious: No
  Sender: AMGEN
  Company Number: US-AMGEN-USASP2024252904

PATIENT
  Sex: Female

DRUGS (4)
  1. RAVICTI [Suspect]
     Active Substance: GLYCEROL PHENYLBUTYRATE
     Indication: Urea cycle disorder
     Dosage: 4 MILLILITER, TID WITH MEALS
     Route: 065
  2. ARGININE [Concomitant]
     Active Substance: ARGININE
     Dosage: UNK, BASE 100 % POWDER
  3. CYCLINEX 1 [Concomitant]
     Dosage: UNK, 7.5G-510 POWDER
  4. Pro Phree [Concomitant]
     Dosage: UNK, 5.5 G/100 POWDER

REACTIONS (1)
  - Nasopharyngitis [Not Recovered/Not Resolved]
